FAERS Safety Report 16118865 (Version 1)
Quarter: 2019Q1

REPORT INFORMATION
  Report Type: Spontaneous
  Country: GB (occurrence: GB)
  Receive Date: 20190326
  Receipt Date: 20190326
  Transmission Date: 20190418
  Serious: Yes (Hospitalization)
  Sender: FDA-Public Use
  Company Number: GB-TEVA-2019-GB-1028385

PATIENT
  Age: 74 Year
  Sex: Male

DRUGS (13)
  1. CANDESARTAN. [Suspect]
     Active Substance: CANDESARTAN
     Dosage: 12 MILLIGRAM DAILY; INCREASED FROM 8MG
     Route: 048
     Dates: start: 20190214
  2. AMOXICILLIN. [Concomitant]
     Active Substance: AMOXICILLIN
  3. FUROSEMIDE. [Suspect]
     Active Substance: FUROSEMIDE
     Dosage: 40 MILLIGRAM DAILY;
     Route: 048
  4. NYSTATIN. [Concomitant]
     Active Substance: NYSTATIN
  5. ACETYLSALICYLIC ACID [Concomitant]
     Active Substance: ASPIRIN
  6. AVAMYS [Concomitant]
     Active Substance: FLUTICASONE FUROATE
     Route: 045
  7. GLYCERYL TRINITRATE [Concomitant]
     Active Substance: NITROGLYCERIN
  8. TRIMETHOPRIM. [Suspect]
     Active Substance: TRIMETHOPRIM
     Indication: URINARY TRACT INFECTION
     Dosage: 400 MILLIGRAM DAILY;
     Route: 048
     Dates: start: 20190215, end: 20190222
  9. NEBIVOLOL. [Concomitant]
     Active Substance: NEBIVOLOL
  10. ATORVASTATIN [Concomitant]
     Active Substance: ATORVASTATIN
  11. EPLERENONE. [Suspect]
     Active Substance: EPLERENONE
     Dosage: 25 MILLIGRAM DAILY;
     Route: 048
  12. SOLIFENACIN [Concomitant]
     Active Substance: SOLIFENACIN
  13. COCODAMOL [Concomitant]
     Active Substance: ACETAMINOPHEN\CODEINE PHOSPHATE

REACTIONS (1)
  - Acute kidney injury [Recovering/Resolving]

NARRATIVE: CASE EVENT DATE: 20190226
